FAERS Safety Report 7754026-0 (Version None)
Quarter: 2011Q3

REPORT INFORMATION
  Report Type: 
  Country: None (occurrence: None)
  Receive Date: 20110915
  Receipt Date: 20110906
  Transmission Date: 20111222
  Serious: No
  Sender: FDA-Public Use
  Company Number: PHHY2011SG65927

PATIENT
  Sex: Male

DRUGS (2)
  1. TASIGNA [Suspect]
     Dosage: 200 MG, BID
     Route: 048
  2. TASIGNA [Suspect]
     Indication: CHRONIC MYELOID LEUKAEMIA
     Dosage: 400 MG, BID
     Route: 048
     Dates: start: 20101201

REACTIONS (1)
  - INCORRECT DOSE ADMINISTERED [None]
